FAERS Safety Report 4429546-7 (Version None)
Quarter: 2004Q3

REPORT INFORMATION
  Report Type: 
  Country: None (occurrence: None)
  Receive Date: 20040819
  Receipt Date: 20040621
  Transmission Date: 20050211
  Serious: Yes (Death)
  Sender: FDA-Public Use
  Company Number: GB-GLAXOSMITHKLINE-B0336697A

PATIENT
  Age: 63 Year
  Sex: Male

DRUGS (3)
  1. SEROXAT [Suspect]
     Dosage: 20MG SEE DOSAGE TEXT
     Route: 048
     Dates: start: 20040205
  2. LOFEPRAMINE [Concomitant]
     Dosage: 70MG TWICE PER DAY
     Route: 065
     Dates: start: 20040501
  3. DIAZEPAM [Concomitant]
     Dosage: 5MG AS REQUIRED
     Route: 065
     Dates: start: 20040501

REACTIONS (3)
  - COMPLETED SUICIDE [None]
  - SUICIDAL IDEATION [None]
  - SUICIDE ATTEMPT [None]
